FAERS Safety Report 18419972 (Version 1)
Quarter: 2020Q4

REPORT INFORMATION
  Report Type: Spontaneous
  Country: US (occurrence: US)
  Receive Date: 20201023
  Receipt Date: 20201023
  Transmission Date: 20210114
  Serious: No
  Sender: FDA-Public Use
  Company Number: None

PATIENT
  Age: 66 Year
  Sex: Male
  Weight: 111.87 kg

DRUGS (2)
  1. QUEEN CITY HEMP 500MG (CBD) [Suspect]
     Active Substance: CANNABIDIOL\HERBALS
     Indication: PAIN MANAGEMENT
     Dosage: ?          QUANTITY:10 DROP(S);?
     Route: 060
     Dates: start: 20191118
  2. QUEEN CITY HEMP 500MG (CBD) [Suspect]
     Active Substance: CANNABIDIOL\HERBALS
     Indication: INFLAMMATION
     Dosage: ?          QUANTITY:10 DROP(S);?
     Route: 060
     Dates: start: 20191118

REACTIONS (1)
  - Hepatotoxicity [None]
